FAERS Safety Report 7322063-6 (Version None)
Quarter: 2011Q1

REPORT INFORMATION
  Report Type: 
  Country: None (occurrence: None)
  Receive Date: 20110228
  Receipt Date: 20110207
  Transmission Date: 20110831
  Serious: Yes (Other)
  Sender: FDA-Public Use
  Company Number: PHHY2011VE10200

PATIENT
  Sex: Female

DRUGS (7)
  1. FORADIL [Suspect]
     Indication: RESPIRATORY DISTRESS
     Dosage: TWICE A DAY
     Dates: start: 20101001
  2. DIPROSPAN [Concomitant]
  3. FORADIL [Suspect]
     Dosage: ONCE DAILY
  4. VOLTAREN [Concomitant]
  5. MIFLONIDE [Suspect]
     Dosage: ONCE DAILY
  6. MIFLONIDE [Suspect]
     Indication: RESPIRATORY DISTRESS
     Dosage: TWICE A DAY
     Dates: start: 20100101
  7. XOLAIR [Suspect]
     Dosage: 300 MG, QMO
     Route: 058

REACTIONS (2)
  - TACHYCARDIA [None]
  - WRIST FRACTURE [None]
